FAERS Safety Report 8773731 (Version 2)
Quarter: 2012Q4

REPORT INFORMATION
  Report Type: 
  Country: DE (occurrence: DE)
  Receive Date: 20120907
  Receipt Date: 20121204
  Transmission Date: 20130627
  Serious: Yes (Death, Hospitalization)
  Sender: FDA-Public Use
  Company Number: DE-ROCHE-1116901

PATIENT
  Sex: Female

DRUGS (5)
  1. AVASTIN [Suspect]
     Indication: GLIOBLASTOMA
     Route: 042
     Dates: start: 20100521, end: 20110325
  2. TAVOR (GERMANY) [Concomitant]
     Route: 065
  3. VOMEX A [Concomitant]
     Route: 065
  4. FORTECORTIN [Concomitant]
     Route: 065
  5. PANTOPRAZOL [Concomitant]
     Route: 065

REACTIONS (2)
  - Leukoencephalopathy [Fatal]
  - Hypothyroidism [Unknown]
